FAERS Safety Report 21949531 (Version 1)
Quarter: 2023Q1

REPORT INFORMATION
  Report Type: Spontaneous
  Country: CN (occurrence: CN)
  Receive Date: 20230203
  Receipt Date: 20230203
  Transmission Date: 20230417
  Serious: Yes (Death, Other)
  Sender: FDA-Public Use
  Company Number: CN-HALEON-CNCH2023APC004749

PATIENT

DRUGS (17)
  1. IBUPROFEN [Suspect]
     Active Substance: IBUPROFEN
     Indication: Pyrexia
     Dosage: 0.30 G, QD
     Route: 048
     Dates: start: 20221223, end: 20221225
  2. METHYLPREDNISOLONE SODIUM SUCCINATE [Suspect]
     Active Substance: METHYLPREDNISOLONE SODIUM SUCCINATE
     Indication: Inflammation
     Dosage: 40 MG, QD
     Route: 042
     Dates: start: 20221227, end: 20230101
  3. METHYLPREDNISOLONE SODIUM SUCCINATE [Suspect]
     Active Substance: METHYLPREDNISOLONE SODIUM SUCCINATE
     Dosage: 80 MG, BID
     Route: 042
     Dates: start: 20230101, end: 20230103
  4. METHYLPREDNISOLONE SODIUM SUCCINATE [Suspect]
     Active Substance: METHYLPREDNISOLONE SODIUM SUCCINATE
     Dosage: 40 MG, QD
     Route: 042
     Dates: start: 20230104
  5. SODIUM CHLORIDE [Suspect]
     Active Substance: SODIUM CHLORIDE
     Indication: Inflammation
     Dosage: 100 ML, QD
     Dates: start: 20221227, end: 20230101
  6. ENOXAPARIN SODIUM [Suspect]
     Active Substance: ENOXAPARIN SODIUM
     Indication: Anticoagulant therapy
     Dosage: 0.40 ML, QD
     Route: 058
     Dates: start: 20221228, end: 20230101
  7. ENOXAPARIN SODIUM [Suspect]
     Active Substance: ENOXAPARIN SODIUM
     Dosage: 0.2 ML, QD
     Route: 058
     Dates: start: 20230101
  8. DICLOFENAC SODIUM [Suspect]
     Active Substance: DICLOFENAC SODIUM
     Indication: Pain
     Dosage: UNK
     Route: 048
     Dates: start: 20221229
  9. DICLOFENAC SODIUM [Suspect]
     Active Substance: DICLOFENAC SODIUM
     Indication: Symptomatic treatment
  10. DICLOFENAC SODIUM [Suspect]
     Active Substance: DICLOFENAC SODIUM
     Indication: Headache
  11. PANTOPRAZOLE [Suspect]
     Active Substance: PANTOPRAZOLE
     Indication: Gastric pH increased
     Dosage: UNK
     Route: 042
     Dates: start: 20230101
  12. PANTOPRAZOLE [Suspect]
     Active Substance: PANTOPRAZOLE
     Indication: Gastrointestinal disorder prophylaxis
  13. SUCRALFATE [Suspect]
     Active Substance: SUCRALFATE
     Indication: Gastric pH increased
     Dosage: UNK
     Dates: start: 20230101
  14. SUCRALFATE [Suspect]
     Active Substance: SUCRALFATE
     Indication: Gastrointestinal disorder prophylaxis
  15. NIMODIPINE [Suspect]
     Active Substance: NIMODIPINE
     Indication: Cerebral vasoconstriction
     Dosage: UNK
     Route: 048
     Dates: start: 20230101
  16. FRUCTOSE\GLYCERIN [Suspect]
     Active Substance: FRUCTOSE\GLYCERIN
     Indication: Dehydration
     Dosage: UNK
     Route: 042
     Dates: start: 20230101
  17. FRUCTOSE\GLYCERIN [Suspect]
     Active Substance: FRUCTOSE\GLYCERIN
     Indication: Reduction of increased intracranial pressure

REACTIONS (21)
  - Clinical death [Fatal]
  - Upper gastrointestinal haemorrhage [Fatal]
  - Chest X-ray abnormal [Fatal]
  - Pneumonia [Fatal]
  - Thrombosis [Fatal]
  - Headache [Fatal]
  - Blood urine present [Fatal]
  - Blood pressure fluctuation [Fatal]
  - Staring [Fatal]
  - Movement disorder [Fatal]
  - Hyperreflexia [Fatal]
  - Cerebrovascular accident [Fatal]
  - Abdominal distension [Fatal]
  - Mouth breathing [Fatal]
  - Flatulence [Fatal]
  - Gastrointestinal haemorrhage [Fatal]
  - Oxygen saturation decreased [Fatal]
  - Acute coronary syndrome [Fatal]
  - Respiratory failure [Fatal]
  - Condition aggravated [Fatal]
  - Inappropriate schedule of product administration [Unknown]

NARRATIVE: CASE EVENT DATE: 20221223
